FAERS Safety Report 8102247-X (Version None)
Quarter: 2012Q1

REPORT INFORMATION
  Report Type: 
  Country: None (occurrence: None)
  Receive Date: 20120131
  Receipt Date: 20120131
  Transmission Date: 20120608
  Serious: Yes (Disabling)
  Sender: FDA-Public Use
  Company Number: None

PATIENT
  Age: 27 Year
  Sex: Female

DRUGS (2)
  1. HUMIRA [Suspect]
     Indication: PSORIASIS
     Dosage: 40MG Q 14 DAYS SQ INJECTION INTERMITTENT
     Route: 058
     Dates: start: 20080811, end: 20111101
  2. PREVEXA [Concomitant]

REACTIONS (2)
  - PAPILLOMA VIRAL INFECTION [None]
  - CERVICAL DYSPLASIA [None]
